FAERS Safety Report 6900379-2 (Version None)
Quarter: 2010Q3

REPORT INFORMATION
  Report Type: 
  Country: None (occurrence: None)
  Receive Date: 20100803
  Receipt Date: 20100728
  Transmission Date: 20110219
  Serious: Yes (Death, Hospitalization, Other)
  Sender: FDA-Public Use
  Company Number: PHHY2010BR50297

PATIENT
  Age: 86 Year
  Sex: Male

DRUGS (3)
  1. EXELON [Suspect]
     Indication: DEMENTIA ALZHEIMER'S TYPE
     Dosage: TTS 9MG/5CM2 30 SIST (PATCH)
     Route: 062
     Dates: start: 20080101
  2. PAMELOR [Suspect]
     Indication: DEMENTIA ALZHEIMER'S TYPE
     Dosage: UNK
  3. FORMOTEROL W/BUDESONIDE [Concomitant]
     Dosage: UNK
     Dates: start: 20020101

REACTIONS (4)
  - AGGRESSION [None]
  - LUNG NEOPLASM MALIGNANT [None]
  - PSYCHIATRIC SYMPTOM [None]
  - PSYCHOTIC DISORDER [None]
